FAERS Safety Report 10436060 (Version 2)
Quarter: 2014Q4

REPORT INFORMATION
  Report Type: Spontaneous
  Country: US (occurrence: US)
  Receive Date: 20140908
  Receipt Date: 20141009
  Transmission Date: 20150528
  Serious: Yes (Other)
  Sender: FDA-Public Use
  Company Number: US-BEH-2014044741

PATIENT
  Age: 62 Year
  Sex: Female
  Weight: 60 kg

DRUGS (8)
  1. PRIVIGEN [Suspect]
     Active Substance: HUMAN IMMUNOGLOBULIN G
     Indication: HYPOGAMMAGLOBULINAEMIA
     Dosage: 20 GM VIAL
     Route: 042
  2. HYDROCORTISONE. [Concomitant]
     Active Substance: HYDROCORTISONE
  3. LORATADINE. [Concomitant]
     Active Substance: LORATADINE
  4. LIDOCAINE PRILOCAINE [Concomitant]
  5. DIPHENHYDRAMINE [Concomitant]
     Active Substance: DIPHENHYDRAMINE
  6. PRIVIGEN [Suspect]
     Active Substance: HUMAN IMMUNOGLOBULIN G
     Route: 042
  7. ACETAMINOPHEN. [Concomitant]
     Active Substance: ACETAMINOPHEN
  8. EPIPEN [Concomitant]
     Active Substance: EPINEPHRINE

REACTIONS (1)
  - Ankle operation [Recovering/Resolving]

NARRATIVE: CASE EVENT DATE: 20140825
